FAERS Safety Report 6122000-6 (Version None)
Quarter: 2009Q1

REPORT INFORMATION
  Report Type: 
  Country: None (occurrence: None)
  Receive Date: 20090316
  Receipt Date: 20090305
  Transmission Date: 20090719
  Serious: Yes (Hospitalization)
  Sender: FDA-Public Use
  Company Number: FACT0900018

PATIENT
  Age: 50 Year
  Sex: Male

DRUGS (1)
  1. FACTIVE [Suspect]
     Indication: PNEUMONIA
     Dosage: 320 MG, QD, ORAL
     Route: 048
     Dates: start: 20090211, end: 20090215

REACTIONS (4)
  - BACK PAIN [None]
  - BONE MARROW GRANULOMA [None]
  - MOBILITY DECREASED [None]
  - MYOKYMIA [None]
